FAERS Safety Report 4301452-8 (Version None)
Quarter: 2004Q1

REPORT INFORMATION
  Report Type: 
  Country: None (occurrence: None)
  Receive Date: 20040219
  Receipt Date: 20040209
  Transmission Date: 20041129
  Serious: Yes (Death)
  Sender: FDA-Public Use
  Company Number: BIVUS040003

PATIENT
  Age: 77 Year
  Sex: Male
  Weight: 61.6 kg

DRUGS (12)
  1. ANGIOMAX [Suspect]
     Indication: ANGIOPLASTY
     Dosage: SEE IMAGE
     Dates: start: 20040123, end: 20040123
  2. ANGIOMAX [Suspect]
     Indication: THROMBOSIS PROPHYLAXIS
     Dosage: SEE IMAGE
     Dates: start: 20040123, end: 20040123
  3. PLAVIX [Concomitant]
  4. BETASPACE (SOTALOL HYDROCHLORIDE) [Concomitant]
  5. COUMADIN [Concomitant]
  6. LIPITOR [Concomitant]
  7. ALTACE [Concomitant]
  8. LASIX [Concomitant]
  9. POTASSIUM (POTASSIUM) [Concomitant]
  10. NITROGLYCERIN [Concomitant]
  11. ISOVUE-370 [Concomitant]
  12. TYLOX (OXYCODONE TEREPHTHALATE, OXYCODONE HYDROCHLORIDE, PARACETAMOL) [Concomitant]

REACTIONS (8)
  - ACTIVATED PARTIAL THROMBOPLASTIN TIME PROLONGED [None]
  - ASPIRATION [None]
  - BLINDNESS TRANSIENT [None]
  - HAEMORRHAGE INTRACRANIAL [None]
  - INTERNATIONAL NORMALISED RATIO DECREASED [None]
  - NEUROLOGICAL SYMPTOM [None]
  - PLATELET COUNT DECREASED [None]
  - VOMITING [None]
